FAERS Safety Report 16802688 (Version 1)
Quarter: 2019Q3

REPORT INFORMATION
  Report Type: Spontaneous
  Country: JP (occurrence: JP)
  Receive Date: 20190912
  Receipt Date: 20190912
  Transmission Date: 20191005
  Serious: Yes (Hospitalization)
  Sender: FDA-Public Use
  Company Number: JP-ROCHE-2364098

PATIENT
  Age: 69 Year
  Sex: Male
  Weight: 49 kg

DRUGS (1)
  1. TECENTRIQ [Suspect]
     Active Substance: ATEZOLIZUMAB
     Indication: NON-SMALL CELL LUNG CANCER
     Route: 041
     Dates: start: 20190710

REACTIONS (1)
  - Pleurisy [Recovered/Resolved]

NARRATIVE: CASE EVENT DATE: 20190715
